FAERS Safety Report 24456941 (Version 2)
Quarter: 2024Q4

REPORT INFORMATION
  Report Type: Spontaneous
  Country: TR (occurrence: TR)
  Receive Date: 20241018
  Receipt Date: 20241105
  Transmission Date: 20250115
  Serious: Yes (Other)
  Sender: BIOGEN
  Company Number: TR-BIOGEN-2024BI01286453

PATIENT
  Sex: Female
  Weight: 42 kg

DRUGS (1)
  1. SPINRAZA [Suspect]
     Active Substance: NUSINERSEN
     Indication: Product used for unknown indication
     Dosage: 13 DOSES
     Route: 050

REACTIONS (2)
  - Papilloedema [Not Recovered/Not Resolved]
  - CSF pressure increased [Unknown]
